FAERS Safety Report 5143033-2 (Version None)
Quarter: 2006Q4

REPORT INFORMATION
  Report Type: 
  Country: None (occurrence: None)
  Receive Date: 20061103
  Receipt Date: 20061023
  Transmission Date: 20070319
  Serious: Yes (Other)
  Sender: FDA-Public Use
  Company Number: PHBS2006JP16631

PATIENT

DRUGS (2)
  1. ANTIRHEUMATIC (INCL.ANTIPHLOGISTICS) [Suspect]
  2. DIOVAN [Suspect]
     Route: 048

REACTIONS (1)
  - NEPHROTIC SYNDROME [None]
